FAERS Safety Report 9686646 (Version 2)
Quarter: 2013Q4

REPORT INFORMATION
  Report Type: Report from Study
  Country: AU (occurrence: AU)
  Receive Date: 20131113
  Receipt Date: 20131120
  Transmission Date: 20140711
  Serious: Yes (Hospitalization, Other)
  Sender: FDA-Public Use
  Company Number: AU-ABBVIE-13P-008-1168572-00

PATIENT
  Age: 41 Year
  Sex: Male

DRUGS (51)
  1. EPILIM [Suspect]
     Indication: GRAND MAL CONVULSION
     Dates: start: 20100610
  2. EPILIM [Suspect]
     Dates: start: 20100730
  3. EPILIM [Suspect]
     Dates: start: 20100825
  4. EPILIM [Suspect]
     Dates: start: 20101210
  5. EPILIM [Suspect]
     Dates: start: 20110415
  6. EPILIM [Suspect]
     Dates: end: 20130923
  7. CLOZARIL [Suspect]
     Indication: SCHIZOPHRENIA
     Route: 048
     Dates: start: 19990606, end: 20130910
  8. CLOZARIL [Suspect]
     Route: 048
     Dates: start: 20130913, end: 20130916
  9. CLOZARIL [Suspect]
     Route: 048
     Dates: start: 20131015
  10. QUETIAPINE [Suspect]
     Indication: PRODUCT USED FOR UNKNOWN INDICATION
  11. QUETIAPINE [Suspect]
     Dates: start: 201305, end: 20130911
  12. QUETIAPINE [Suspect]
     Dates: start: 201306
  13. QUETIAPINE [Suspect]
     Dates: start: 20130918, end: 20130924
  14. WARFARIN [Suspect]
     Indication: PRODUCT USED FOR UNKNOWN INDICATION
     Dates: end: 2013
  15. TEMAZEPAM [Concomitant]
     Indication: PRODUCT USED FOR UNKNOWN INDICATION
  16. BENZATROPINE MESILATE [Concomitant]
     Indication: PRODUCT USED FOR UNKNOWN INDICATION
  17. EFFEXOR [Concomitant]
     Indication: PRODUCT USED FOR UNKNOWN INDICATION
  18. SEROQUEL [Concomitant]
     Indication: PRODUCT USED FOR UNKNOWN INDICATION
  19. BENZATROPINE [Concomitant]
     Indication: PRODUCT USED FOR UNKNOWN INDICATION
  20. VENLAFAXINE [Concomitant]
     Indication: PRODUCT USED FOR UNKNOWN INDICATION
  21. BENZHEXOOL [Concomitant]
     Indication: PRODUCT USED FOR UNKNOWN INDICATION
  22. DIAZEPAM [Concomitant]
     Indication: PRODUCT USED FOR UNKNOWN INDICATION
  23. IBUPROFEN [Concomitant]
     Indication: PRODUCT USED FOR UNKNOWN INDICATION
  24. COGENTIN [Concomitant]
     Indication: PRODUCT USED FOR UNKNOWN INDICATION
     Dates: start: 20000221
  25. ARTANE [Concomitant]
     Indication: PRODUCT USED FOR UNKNOWN INDICATION
     Dates: start: 20020613
  26. AUGMENTIN [Concomitant]
     Indication: PRODUCT USED FOR UNKNOWN INDICATION
     Dates: start: 20020808
  27. PANAMAX [Concomitant]
     Indication: PRODUCT USED FOR UNKNOWN INDICATION
     Dates: start: 20020808
  28. CEFTRIAXONE [Concomitant]
     Dates: start: 20041213
  29. VALIUM [Concomitant]
     Indication: PRODUCT USED FOR UNKNOWN INDICATION
     Dates: start: 20050219
  30. CIPRAMIL [Concomitant]
     Indication: PRODUCT USED FOR UNKNOWN INDICATION
     Dates: start: 20050219
  31. AMOXIL [Concomitant]
     Indication: PRODUCT USED FOR UNKNOWN INDICATION
     Dates: start: 20050912
  32. TRIPRIM [Concomitant]
     Indication: PRODUCT USED FOR UNKNOWN INDICATION
     Dates: start: 20060614
  33. NOROXIN [Concomitant]
     Indication: PRODUCT USED FOR UNKNOWN INDICATION
     Dates: start: 20060619
  34. VOLTAREN EMULGEL [Concomitant]
     Indication: PRODUCT USED FOR UNKNOWN INDICATION
     Dates: start: 20060803
  35. CELEBREX [Concomitant]
     Indication: PRODUCT USED FOR UNKNOWN INDICATION
     Dates: start: 20060803
  36. DITROPAN [Concomitant]
     Indication: PRODUCT USED FOR UNKNOWN INDICATION
     Dates: start: 20070129
  37. KEFLEX [Concomitant]
     Indication: PRODUCT USED FOR UNKNOWN INDICATION
     Dates: start: 20070430
  38. DORYX [Concomitant]
     Indication: PRODUCT USED FOR UNKNOWN INDICATION
     Dates: start: 20070528
  39. SIGMACORT [Concomitant]
     Indication: PRODUCT USED FOR UNKNOWN INDICATION
     Dates: start: 20070626
  40. CILAMOX [Concomitant]
     Indication: PRODUCT USED FOR UNKNOWN INDICATION
     Dates: start: 20070911
  41. VOLTAREN [Concomitant]
     Indication: PRODUCT USED FOR UNKNOWN INDICATION
     Dates: start: 20071227
  42. DOXYCYCLINE HYCLATE [Concomitant]
     Indication: PRODUCT USED FOR UNKNOWN INDICATION
     Dates: start: 20080206
  43. RHINOCORT [Concomitant]
     Indication: PRODUCT USED FOR UNKNOWN INDICATION
     Dates: start: 20080215
  44. SANDOMIGRAN [Concomitant]
     Indication: PRODUCT USED FOR UNKNOWN INDICATION
     Dates: start: 20080304
  45. HYDROZOLE [Concomitant]
     Indication: PRODUCT USED FOR UNKNOWN INDICATION
     Dates: start: 20080304
  46. NEMDYN [Concomitant]
     Indication: PRODUCT USED FOR UNKNOWN INDICATION
     Dates: start: 20080320
  47. MAXOLON [Concomitant]
     Indication: PRODUCT USED FOR UNKNOWN INDICATION
     Dates: start: 20080804
  48. EFFEXOR-XR [Concomitant]
     Indication: PRODUCT USED FOR UNKNOWN INDICATION
     Dates: start: 20081208
  49. STAPHYLEX [Concomitant]
     Indication: PRODUCT USED FOR UNKNOWN INDICATION
     Dates: start: 20100326
  50. CRESTOR [Concomitant]
     Indication: PRODUCT USED FOR UNKNOWN INDICATION
     Dates: start: 20100810
  51. VALPROATE SODIUM [Concomitant]
     Indication: PRODUCT USED FOR UNKNOWN INDICATION
     Dates: start: 2010

REACTIONS (24)
  - Squamous cell carcinoma [Unknown]
  - Judgement impaired [Unknown]
  - Decreased appetite [Unknown]
  - Impaired self-care [Unknown]
  - Poor quality sleep [Unknown]
  - Musculoskeletal stiffness [Unknown]
  - Suicide attempt [Unknown]
  - Depressed mood [Unknown]
  - Hallucination, auditory [Unknown]
  - Paranoia [Unknown]
  - Sedation [Unknown]
  - Cellulitis [Unknown]
  - Confusional state [Unknown]
  - Deep vein thrombosis [Unknown]
  - Vitamin B12 deficiency [Unknown]
  - Extrapyramidal disorder [Unknown]
  - Grand mal convulsion [Unknown]
  - Neutropenia [Unknown]
  - Agranulocytosis [Unknown]
  - Abnormal behaviour [Unknown]
  - White blood cell count decreased [Unknown]
  - Monocyte count decreased [Unknown]
  - Suicidal ideation [Unknown]
  - Drug interaction [Unknown]
